FAERS Safety Report 17849757 (Version 1)
Quarter: 2020Q2

REPORT INFORMATION
  Report Type: Spontaneous
  Country: US (occurrence: US)
  Receive Date: 20200602
  Receipt Date: 20200602
  Transmission Date: 20200714
  Serious: No
  Sender: FDA-Public Use
  Company Number: US-PFIZER INC-2020214033

PATIENT
  Age: 72 Year
  Sex: Female
  Weight: 86.18 kg

DRUGS (2)
  1. CELEBREX [Suspect]
     Active Substance: CELECOXIB
     Indication: CARDIOVASCULAR DISORDER
  2. CELEBREX [Suspect]
     Active Substance: CELECOXIB
     Indication: VARICOSE VEIN
     Dosage: UNK

REACTIONS (3)
  - Off label use [Unknown]
  - Peripheral swelling [Unknown]
  - Product use in unapproved indication [Unknown]
